FAERS Safety Report 9055129 (Version 1)
Quarter: 2013Q1

REPORT INFORMATION
  Report Type: Spontaneous
  Country: DK (occurrence: DK)
  Receive Date: 20130206
  Receipt Date: 20130206
  Transmission Date: 20140127
  Serious: Yes (Other)
  Sender: FDA-Public Use
  Company Number: DK-JNJFOC-20130109922

PATIENT
  Sex: 0

DRUGS (12)
  1. FENTANYL CITRATE [Suspect]
     Indication: PROCEDURAL PAIN
     Route: 042
  2. PARACETAMOL [Suspect]
     Route: 048
  3. PARACETAMOL [Suspect]
     Indication: PREMEDICATION
     Route: 048
  4. IBUPROFEN [Suspect]
     Indication: PREMEDICATION
     Route: 048
  5. REMIFENTANIL [Suspect]
     Indication: ANAESTHESIA
     Route: 065
  6. KETOROLAC [Suspect]
     Indication: PRODUCT USED FOR UNKNOWN INDICATION
     Route: 042
  7. DEXAMETHASONE [Suspect]
     Indication: PRODUCT USED FOR UNKNOWN INDICATION
     Route: 042
  8. ONDANSETRON [Suspect]
     Indication: PROPHYLAXIS OF NAUSEA AND VOMITING
     Route: 042
  9. BUPIVACAINE [Suspect]
     Indication: PRODUCT USED FOR UNKNOWN INDICATION
     Route: 065
  10. BUPIVACAINE [Suspect]
     Indication: PRODUCT USED FOR UNKNOWN INDICATION
     Route: 065
  11. CODEINE [Suspect]
     Indication: PREMEDICATION
     Route: 048
  12. PROPOFOL [Suspect]
     Indication: ANAESTHESIA
     Route: 065

REACTIONS (4)
  - Procedural vomiting [Unknown]
  - Procedural nausea [Unknown]
  - Pain [Unknown]
  - Somnolence [Unknown]
